FAERS Safety Report 5031441-X (Version None)
Quarter: 2006Q2

REPORT INFORMATION
  Report Type: 
  Country: None (occurrence: None)
  Receive Date: 20060616
  Receipt Date: 20060530
  Transmission Date: 20061013
  Serious: Yes (Hospitalization, Other)
  Sender: FDA-Public Use
  Company Number: US200605003015

PATIENT
  Age: 61 Year
  Sex: Female

DRUGS (5)
  1. PROZAC [Suspect]
     Indication: DEPRESSION
     Dosage: 20 MG, 4/D, ORAL
     Route: 048
     Dates: start: 19840101
  2. STRATTERA [Suspect]
     Indication: ATTENTION DEFICIT/HYPERACTIVITY DISORDER
     Dosage: ORAL
     Route: 048
     Dates: start: 20031201, end: 20040701
  3. CYMBALTA [Suspect]
     Indication: BONE PAIN
     Dosage: 30 MG, DAILY (1/D), ORAL
     Route: 048
     Dates: start: 20060501, end: 20060501
  4. NEURONTIN [Concomitant]
  5. LIBRIUM [Concomitant]

REACTIONS (40)
  - ABDOMINAL PAIN UPPER [None]
  - ANAEMIA [None]
  - APHASIA [None]
  - ARTERIAL OCCLUSIVE DISEASE [None]
  - ARTHRITIS [None]
  - ASTHENIA [None]
  - ASTHENOPIA [None]
  - BACK PAIN [None]
  - BILE DUCT OBSTRUCTION [None]
  - BLOOD CHOLESTEROL INCREASED [None]
  - BLOOD COUNT ABNORMAL [None]
  - BONE PAIN [None]
  - CORONARY ARTERY OCCLUSION [None]
  - DEPRESSED MOOD [None]
  - DIFFICULTY IN WALKING [None]
  - DYSPNOEA [None]
  - EMOTIONAL DISORDER [None]
  - FALL [None]
  - FEELING ABNORMAL [None]
  - GAIT DISTURBANCE [None]
  - HAEMORRHAGE [None]
  - HYPERSOMNIA [None]
  - INJURY [None]
  - INTERVERTEBRAL DISC COMPRESSION [None]
  - LISTLESS [None]
  - MALAISE [None]
  - MALNUTRITION [None]
  - MIGRAINE [None]
  - NON-CARDIAC CHEST PAIN [None]
  - OESOPHAGEAL PAIN [None]
  - OESOPHAGEAL SPASM [None]
  - ORAL INTAKE REDUCED [None]
  - PAIN [None]
  - PSYCHOMOTOR SKILLS IMPAIRED [None]
  - SELF INJURIOUS BEHAVIOUR [None]
  - SOCIAL AVOIDANT BEHAVIOUR [None]
  - TINNITUS [None]
  - VISION BLURRED [None]
  - VOMITING [None]
  - WEIGHT DECREASED [None]
